FAERS Safety Report 4514550-0 (Version None)
Quarter: 2004Q4

REPORT INFORMATION
  Report Type: 
  Country: None (occurrence: None)
  Receive Date: 20040928
  Receipt Date: 20040802
  Transmission Date: 20050328
  Serious: Yes (Hospitalization)
  Sender: FDA-Public Use
  Company Number: 04P-163-0269213-00

PATIENT
  Age: 39 Year
  Sex: Female
  Weight: 59.8748 kg

DRUGS (5)
  1. HUMIRA [Suspect]
     Indication: RHEUMATOID ARTHRITIS
     Dosage: 40 MG, 1 IN 2 WK, SUBCUTANEOUS
     Route: 058
     Dates: start: 20040201, end: 20040501
  2. PREDNISONE [Concomitant]
  3. LEVOTHYROXINE SODIUM [Concomitant]
  4. ALENDRONATE SODIUM [Concomitant]
  5. HYDROCODONE [Concomitant]

REACTIONS (4)
  - ANIMAL SCRATCH [None]
  - PSEUDOMONAS INFECTION [None]
  - PYODERMA GANGRENOSUM [None]
  - STAPHYLOCOCCAL INFECTION [None]
